FAERS Safety Report 10469279 (Version 1)
Quarter: 2014Q3

REPORT INFORMATION
  Report Type: Spontaneous
  Country: CA (occurrence: None)
  Receive Date: 20140919
  Receipt Date: 20140919
  Transmission Date: 20150326
  Serious: Yes (Other)
  Sender: FDA-Public Use
  Company Number: CA-017093

PATIENT
  Age: 65 Year
  Sex: Male

DRUGS (12)
  1. FIRMAGON [Suspect]
     Active Substance: DEGARELIX ACETATE
     Indication: PROSTATE CANCER
     Dosage: 1X/MONTH
     Route: 058
     Dates: start: 20140425
  2. VENTOLIN [Concomitant]
     Active Substance: ALBUTEROL SULFATE
  3. TYLENOL [Concomitant]
     Active Substance: ACETAMINOPHEN
  4. FLOVENT [Concomitant]
     Active Substance: FLUTICASONE PROPIONATE
  5. FLOMAX [Concomitant]
     Active Substance: TAMSULOSIN HYDROCHLORIDE
  6. TYLENOL [Concomitant]
     Active Substance: ACETAMINOPHEN
  7. ALLOPURINOL. [Concomitant]
     Active Substance: ALLOPURINOL
  8. ASPIRIN. [Concomitant]
     Active Substance: ASPIRIN
  9. PRAVASTATIN [Concomitant]
     Active Substance: PRAVASTATIN\PRAVASTATIN SODIUM
  10. VITAMIN B12 [Concomitant]
     Active Substance: CYANOCOBALAMIN
  11. FINASTERIDE. [Concomitant]
     Active Substance: FINASTERIDE
  12. SPIRIVA [Concomitant]
     Active Substance: TIOTROPIUM BROMIDE MONOHYDRATE

REACTIONS (4)
  - Peripheral swelling [None]
  - Weight decreased [None]
  - Pain in extremity [None]
  - Dyspnoea [None]

NARRATIVE: CASE EVENT DATE: 20140911
